FAERS Safety Report 14975372 (Version 1)
Quarter: 2018Q2

REPORT INFORMATION
  Report Type: Spontaneous
  Country: CH (occurrence: CH)
  Receive Date: 20180605
  Receipt Date: 20180605
  Transmission Date: 20180711
  Serious: Yes (Life-Threatening)
  Sender: FDA-Public Use
  Company Number: CH-009507513-1805CHE014398

PATIENT
  Age: 63 Year
  Sex: Male

DRUGS (7)
  1. CRESTOR [Concomitant]
     Active Substance: ROSUVASTATIN CALCIUM
  2. DAFALGAN [Concomitant]
     Active Substance: ACETAMINOPHEN
  3. NEXIUM [Concomitant]
     Active Substance: ESOMEPRAZOLE MAGNESIUM
  4. PREDNISONE. [Concomitant]
     Active Substance: PREDNISONE
  5. ASPIRIN CARDIO [Concomitant]
     Active Substance: ASPIRIN
  6. KEYTRUDA [Suspect]
     Active Substance: PEMBROLIZUMAB
     Indication: METASTATIC MALIGNANT MELANOMA
     Route: 041
     Dates: start: 20170929, end: 20180328
  7. EUTHYROX [Concomitant]
     Active Substance: LEVOTHYROXINE SODIUM

REACTIONS (1)
  - Jejunal perforation [Recovered/Resolved with Sequelae]

NARRATIVE: CASE EVENT DATE: 201804
